FAERS Safety Report 16014259 (Version 2)
Quarter: 2019Q1

REPORT INFORMATION
  Report Type: Report from Study
  Country: US (occurrence: US)
  Receive Date: 20190227
  Receipt Date: 20190329
  Transmission Date: 20190418
  Serious: Yes (Other)
  Sender: FDA-Public Use
  Company Number: US-TESAROUBC-2019-TSO01060-US

PATIENT
  Age: 47 Year
  Sex: Female

DRUGS (1)
  1. ZEJULA [Suspect]
     Active Substance: NIRAPARIB
     Indication: PRODUCT USED FOR UNKNOWN INDICATION
     Dosage: 300 MG, QD (AT NIGHT)
     Route: 048
     Dates: start: 20180727

REACTIONS (4)
  - Nerve injury [Unknown]
  - Surgery [Unknown]
  - Abdominal pain upper [Unknown]
  - Abdominal infection [Unknown]

NARRATIVE: CASE EVENT DATE: 201902
